FAERS Safety Report 4290579-5 (Version None)
Quarter: 2004Q1

REPORT INFORMATION
  Report Type: 
  Country: None (occurrence: None)
  Receive Date: 20040205
  Receipt Date: 20040120
  Transmission Date: 20041129
  Serious: Yes (Other)
  Sender: FDA-Public Use
  Company Number: 601087

PATIENT
  Age: 50 Year
  Sex: 0

DRUGS (1)
  1. RECOMBINATE [Suspect]
     Indication: SURGERY
     Dates: start: 19970108, end: 19970119

REACTIONS (1)
  - HEPATITIS A ANTIBODY POSITIVE [None]
